FAERS Safety Report 25442302 (Version 1)
Quarter: 2025Q2

REPORT INFORMATION
  Report Type: Spontaneous
  Country: CN (occurrence: CN)
  Receive Date: 20250616
  Receipt Date: 20250616
  Transmission Date: 20250717
  Serious: Yes (Death, Other)
  Sender: BEIGENE
  Company Number: CN-BEIGENE-BGN-2025-009589

PATIENT
  Age: 76 Year
  Weight: 55 kg

DRUGS (3)
  1. TISLELIZUMAB [Suspect]
     Active Substance: TISLELIZUMAB
     Indication: Small cell lung cancer
  2. ETOPOSIDE [Concomitant]
     Active Substance: ETOPOSIDE
     Indication: Small cell lung cancer
  3. CARBOPLATIN [Concomitant]
     Active Substance: CARBOPLATIN
     Indication: Small cell lung cancer

REACTIONS (6)
  - Myocardial infarction [Fatal]
  - Immune-mediated hepatitis [Unknown]
  - Immune-mediated myocarditis [Unknown]
  - Disease progression [Unknown]
  - Blood glucose increased [Unknown]
  - Off label use [Unknown]
